FAERS Safety Report 5891910-7 (Version None)
Quarter: 2008Q3

REPORT INFORMATION
  Report Type: 
  Country: None (occurrence: None)
  Receive Date: 20080922
  Receipt Date: 20080910
  Transmission Date: 20090109
  Serious: Yes (Death, Hospitalization, Other)
  Sender: FDA-Public Use
  Company Number: LB-ELI_LILLY_AND_COMPANY-LB200807001570

PATIENT
  Age: 78 Year
  Sex: Male

DRUGS (1)
  1. TERIPARATIDE [Suspect]
     Indication: OSTEOPOROSIS
     Dosage: 20 UG, DAILY (1/D)
     Route: 058

REACTIONS (3)
  - CARDIOVASCULAR DISORDER [None]
  - HOSPITALISATION [None]
  - LUNG CANCER METASTATIC [None]
